FAERS Safety Report 15037331 (Version 1)
Quarter: 2018Q2

REPORT INFORMATION
  Report Type: Report from Study
  Country: ES (occurrence: ES)
  Receive Date: 20180620
  Receipt Date: 20180620
  Transmission Date: 20180711
  Serious: Yes (Other)
  Sender: FDA-Public Use
  Company Number: ES-TEVA-2018-ES-908882

PATIENT
  Age: 83 Year
  Sex: Female

DRUGS (1)
  1. ENALAPRIL 10 MG COMPRIMIDO [Suspect]
     Active Substance: ENALAPRIL
     Indication: HYPERTENSION
     Dosage: 10 MILLIGRAM DAILY; 1-0-0
     Route: 048
     Dates: end: 20170828

REACTIONS (1)
  - Acute kidney injury [Unknown]

NARRATIVE: CASE EVENT DATE: 2017
